FAERS Safety Report 5280349-3 (Version None)
Quarter: 2007Q1

REPORT INFORMATION
  Report Type: 
  Country: None (occurrence: None)
  Receive Date: 20070329
  Receipt Date: 20070326
  Transmission Date: 20070707
  Serious: Yes (Hospitalization)
  Sender: FDA-Public Use
  Company Number: GB-ELI_LILLY_AND_COMPANY-GB200702004646

PATIENT
  Age: 40 Year
  Sex: Female
  Weight: 57.8 kg

DRUGS (9)
  1. GEMCITABINE HCL [Suspect]
     Indication: BREAST CANCER
     Dosage: 3192 MG, UNKNOWN
     Route: 042
     Dates: start: 20070208, end: 20070208
  2. PACLITAXEL [Suspect]
     Indication: BREAST CANCER
     Dosage: 276 MG, UNKNOWN
     Route: 042
     Dates: start: 20070208
  3. CETIRIZINE HCL [Concomitant]
     Indication: RASH PRURITIC
     Dosage: 10 MG, 2/D
     Route: 048
     Dates: start: 20070214, end: 20070216
  4. DEXAMETHASONE [Concomitant]
     Indication: PROPHYLAXIS
     Dosage: 20 MG, DAILY (1/D)
     Route: 042
     Dates: start: 20070208, end: 20070208
  5. RANITIDINE [Concomitant]
     Indication: PROPHYLAXIS
     Dosage: 50 MG, DAILY (1/D)
     Route: 042
     Dates: start: 20070208, end: 20070208
  6. CHLORPHENIRAMINE MALEATE [Concomitant]
     Indication: PROPHYLAXIS
     Dosage: 10 MG, DAILY (1/D)
     Route: 042
     Dates: start: 20070208, end: 20070208
  7. DOMPERIDONE [Concomitant]
     Indication: ANTIEMETIC SUPPORTIVE CARE
     Dosage: 10 MG, AS NEEDED
     Route: 048
     Dates: start: 20070208, end: 20070209
  8. IBUPROFEN [Concomitant]
     Indication: ARTHRALGIA
     Dosage: 400 MG, 3/D
     Route: 048
     Dates: start: 20070210, end: 20070212
  9. CO-CODAMOL [Concomitant]
     Indication: PAIN
     Dosage: 1 D/F, 4/D
     Route: 048
     Dates: start: 20070210, end: 20070216

REACTIONS (4)
  - ARTHRALGIA [None]
  - DYSPNOEA [None]
  - PRURITUS [None]
  - RASH MACULO-PAPULAR [None]
